FAERS Safety Report 15966503 (Version 1)
Quarter: 2019Q1

REPORT INFORMATION
  Report Type: Spontaneous
  Country: GB (occurrence: GB)
  Receive Date: 20190215
  Receipt Date: 20190215
  Transmission Date: 20190418
  Serious: Yes (Hospitalization)
  Sender: FDA-Public Use
  Company Number: GB-TEVA-2019-GB-1012045

PATIENT
  Age: 89 Year
  Sex: Female

DRUGS (11)
  1. DORZOLAMIDE [Concomitant]
     Active Substance: DORZOLAMIDE
  2. TOUJEO [Concomitant]
     Active Substance: INSULIN GLARGINE
     Dosage: 300UNITS/ML
  3. ALLOPURINOL. [Concomitant]
     Active Substance: ALLOPURINOL
  4. CYCLIZINE [Concomitant]
     Active Substance: CYCLIZINE
  5. RELVAR ELLIPTA [Concomitant]
     Active Substance: FLUTICASONE FUROATE\VILANTEROL TRIFENATATE
     Dosage: 184MICROGRAMS/DOSE / 22MICROGRAMS/DOSE
     Route: 055
  6. FUROSEMIDE. [Concomitant]
     Active Substance: FUROSEMIDE
  7. LATANOPROST. [Concomitant]
     Active Substance: LATANOPROST
  8. CARVEDILOL. [Concomitant]
     Active Substance: CARVEDILOL
  9. LANSOPRAZOLE. [Concomitant]
     Active Substance: LANSOPRAZOLE
  10. AMOXICILLIN. [Suspect]
     Active Substance: AMOXICILLIN
     Indication: LOWER RESPIRATORY TRACT INFECTION
     Dosage: 1500 MILLIGRAM DAILY;
     Route: 065
     Dates: start: 20181026, end: 20181031
  11. CLOPIDOGREL [Concomitant]
     Active Substance: CLOPIDOGREL BISULFATE

REACTIONS (2)
  - Drug-induced liver injury [Recovered/Resolved with Sequelae]
  - Jaundice [Unknown]
